FAERS Safety Report 17983355 (Version 1)
Quarter: 2020Q3

REPORT INFORMATION
  Report Type: Spontaneous
  Country: US (occurrence: US)
  Receive Date: 20200706
  Receipt Date: 20200706
  Transmission Date: 20201103
  Serious: No
  Sender: FDA-Public Use
  Company Number: US-ELI_LILLY_AND_COMPANY-US202006004039

PATIENT
  Sex: Female

DRUGS (1)
  1. EMGALITY [Suspect]
     Active Substance: GALCANEZUMAB-GNLM
     Indication: MIGRAINE
     Dosage: 120 MG, UNKNOWN
     Route: 058
     Dates: start: 20200519

REACTIONS (6)
  - Immune system disorder [Unknown]
  - Somnolence [Unknown]
  - Feeling abnormal [Recovering/Resolving]
  - Migraine [Unknown]
  - Underdose [Unknown]
  - Influenza [Unknown]
